FAERS Safety Report 5829600-9 (Version None)
Quarter: 2008Q3

REPORT INFORMATION
  Report Type: 
  Country: None (occurrence: None)
  Receive Date: 20080729
  Receipt Date: 20080717
  Transmission Date: 20090109
  Serious: Yes (Hospitalization)
  Sender: FDA-Public Use
  Company Number: 2008BI017950

PATIENT
  Age: 53 Year
  Sex: Male
  Weight: 87.0906 kg

DRUGS (3)
  1. AVONEX [Suspect]
     Indication: MULTIPLE SCLEROSIS
     Dosage: 30 UG;IM
     Route: 030
     Dates: start: 20020101, end: 20030101
  2. AVONEX [Suspect]
     Indication: MULTIPLE SCLEROSIS
     Dosage: 30 UG;IM
     Route: 030
     Dates: start: 20030101
  3. MECLIZINE [Concomitant]

REACTIONS (7)
  - CONDITION AGGRAVATED [None]
  - GASTRIC DISORDER [None]
  - HEART RATE INCREASED [None]
  - HYPERTENSION [None]
  - MULTIPLE SCLEROSIS [None]
  - MUSCLE SPASMS [None]
  - PARALYSIS [None]
